FAERS Safety Report 4620471-5 (Version None)
Quarter: 2005Q1

REPORT INFORMATION
  Report Type: 
  Country: None (occurrence: None)
  Receive Date: 20050324
  Receipt Date: 20050317
  Transmission Date: 20050727
  Serious: Yes (Death)
  Sender: FDA-Public Use
  Company Number: KII-2001-0015520

PATIENT
  Sex: Male

DRUGS (3)
  1. OXYCONTIN [Suspect]
     Dosage: SEE IMAGE
     Route: 048
  2. NEMBUTAL [Concomitant]
  3. METHADONE (METHADONE) TABLET [Concomitant]

REACTIONS (1)
  - DEATH [None]
